FAERS Safety Report 18104088 (Version 5)
Quarter: 2022Q2

REPORT INFORMATION
  Report Type: Report from Study
  Country: DE (occurrence: DE)
  Receive Date: 20200803
  Receipt Date: 20220421
  Transmission Date: 20220720
  Serious: Yes (Life-Threatening, Hospitalization, Other)
  Sender: FDA-Public Use
  Company Number: DE-SAMSUNG BIOEPIS-SB-2020-22802

PATIENT
  Age: 54 Year
  Sex: Female

DRUGS (8)
  1. METHOTREXATE [Suspect]
     Active Substance: METHOTREXATE
     Indication: Product used for unknown indication
     Dosage: 10 MILLIGRAM
     Route: 065
  2. IMRALDI [Suspect]
     Active Substance: ADALIMUMAB
     Indication: Rheumatoid arthritis
     Dosage: 40 MILLIGRAM
     Route: 065
     Dates: start: 201904, end: 20191010
  3. HYDROXYCHLOROQUINE [Suspect]
     Active Substance: HYDROXYCHLOROQUINE
     Indication: Product used for unknown indication
     Dosage: 200 MILLIGRAM, QD
     Route: 065
     Dates: start: 202006
  4. CIMZIA [Concomitant]
     Active Substance: CERTOLIZUMAB PEGOL
     Indication: Product used for unknown indication
     Dosage: 200 MILLIGRAM
     Route: 065
     Dates: start: 201605, end: 201904
  5. VERAPAMIL HYDROCHLORIDE [Concomitant]
     Active Substance: VERAPAMIL HYDROCHLORIDE
     Indication: Product used for unknown indication
     Dosage: 160 MILLIGRAM, QD
     Route: 065
  6. RAMIPRIL [Concomitant]
     Active Substance: RAMIPRIL
     Indication: Product used for unknown indication
     Dosage: 2, QD (5 MG/25 MG)
     Route: 065
  7. METHOTREXATE SODIUM [Concomitant]
     Active Substance: METHOTREXATE SODIUM
     Indication: Product used for unknown indication
     Dosage: UNK
     Route: 065
  8. PREDNISOLONE [Concomitant]
     Active Substance: PREDNISOLONE
     Indication: Product used for unknown indication
     Dosage: 5 MILLIGRAM, QD
     Route: 065
     Dates: start: 2002

REACTIONS (3)
  - Squamous cell carcinoma of the tongue [Not Recovered/Not Resolved]
  - Neoplasm progression [Unknown]
  - Cachexia [Unknown]

NARRATIVE: CASE EVENT DATE: 20190701
